FAERS Safety Report 8503649-X (Version None)
Quarter: 2012Q3

REPORT INFORMATION
  Report Type: 
  Country: None (occurrence: None)
  Receive Date: 20120702
  Receipt Date: 20120601
  Transmission Date: 20120928
  Serious: Yes (Death, Hospitalization, Other)
  Sender: FDA-Public Use
  Company Number: 1233605

PATIENT
  Age: 51 Year
  Sex: Female
  Weight: 60 kg

DRUGS (16)
  1. METHYLPHENIDATE [Concomitant]
  2. DEPO-MEDROL [Suspect]
     Indication: LOCAL ANAESTHESIA
     Dosage: 90 MG, INTRAVASCULAR
     Dates: start: 20100316, end: 20100316
  3. MACROBID [Concomitant]
  4. PROMETHAZINE HCL [Concomitant]
  5. SOMA [Concomitant]
  6. BUPIVACAINE HCL [Suspect]
     Indication: LOCAL ANAESTHESIA
     Dosage: 2 CC, INTRAVASCULAR
     Dates: start: 20100316, end: 20100316
  7. LIDOCAINE HCL INJ [Concomitant]
  8. HYDROCODONE BITARTRATE + ACETAMINOPHEN [Concomitant]
  9. LORTAB [Concomitant]
  10. HYDROXYZINE HCL [Concomitant]
  11. ZANTAC [Concomitant]
  12. FENTANYL [Concomitant]
  13. CARISOPRODOL [Concomitant]
  14. XANAX [Concomitant]
  15. FOLIC ACID [Concomitant]
  16. IOPAMIDOL [Concomitant]

REACTIONS (22)
  - CIRCULATORY COLLAPSE [None]
  - HYPOXIC-ISCHAEMIC ENCEPHALOPATHY [None]
  - VENTRICULAR TACHYCARDIA [None]
  - SINUS TACHYCARDIA [None]
  - GRAND MAL CONVULSION [None]
  - PAIN [None]
  - NERVOUS SYSTEM DISORDER [None]
  - VENTRICULAR FIBRILLATION [None]
  - PULSELESS ELECTRICAL ACTIVITY [None]
  - SINUS BRADYCARDIA [None]
  - LOSS OF CONSCIOUSNESS [None]
  - RESPIRATORY FAILURE [None]
  - HYPOTENSION [None]
  - MEDICATION ERROR [None]
  - TOXICITY TO VARIOUS AGENTS [None]
  - VASCULAR ACCESS COMPLICATION [None]
  - RESPIRATORY ARREST [None]
  - CARDIOTOXICITY [None]
  - INCORRECT ROUTE OF DRUG ADMINISTRATION [None]
  - UNRESPONSIVE TO STIMULI [None]
  - POOR VENOUS ACCESS [None]
  - CARDIAC ARREST [None]
